FAERS Safety Report 5517075-9 (Version None)
Quarter: 2007Q4

REPORT INFORMATION
  Report Type: 
  Country: None (occurrence: None)
  Receive Date: 20071114
  Receipt Date: 20070806
  Transmission Date: 20080405
  Serious: No
  Sender: FDA-Public Use
  Company Number: A0668044A

PATIENT
  Age: 40 Year
  Sex: Female

DRUGS (3)
  1. COMMIT [Suspect]
     Dates: start: 20070723, end: 20070730
  2. COMMIT [Suspect]
     Dates: start: 20070730
  3. NICODERM CQ [Suspect]

REACTIONS (8)
  - APPLICATION SITE PRURITUS [None]
  - ARTHRALGIA [None]
  - ASTHENIA [None]
  - DISCOMFORT [None]
  - FEELING ABNORMAL [None]
  - HEADACHE [None]
  - HYPERSOMNIA [None]
  - MYALGIA [None]
